FAERS Safety Report 9867291 (Version 1)
Quarter: 2014Q1

REPORT INFORMATION
  Report Type: Spontaneous
  Country: CN (occurrence: CN)
  Receive Date: 20140204
  Receipt Date: 20140204
  Transmission Date: 20141002
  Serious: Yes (Death, Life-Threatening, Hospitalization)
  Sender: FDA-Public Use
  Company Number: CN-CELGENEUS-035-21880-14014367

PATIENT
  Age: 52 Year
  Sex: Male

DRUGS (3)
  1. REVLIMID [Suspect]
     Indication: MYELODYSPLASTIC SYNDROME
     Dosage: 10 MILLIGRAM
     Dates: start: 20131111, end: 20140124
  2. REVLIMID [Suspect]
     Indication: OFF LABEL USE
  3. TPO [Concomitant]
     Indication: MYELODYSPLASTIC SYNDROME
     Route: 065
     Dates: start: 20131111

REACTIONS (5)
  - Myelodysplastic syndrome [Fatal]
  - Pulmonary embolism [Not Recovered/Not Resolved]
  - Splenic embolism [Not Recovered/Not Resolved]
  - Diarrhoea [Not Recovered/Not Resolved]
  - Thrombocytopenia [Not Recovered/Not Resolved]
